FAERS Safety Report 6494185-3 (Version None)
Quarter: 2009Q4

REPORT INFORMATION
  Report Type: 
  Country: None (occurrence: None)
  Receive Date: 20091214
  Receipt Date: 20090116
  Transmission Date: 20100525
  Serious: No
  Sender: FDA-Public Use
  Company Number: US-BRISTOL-MYERS SQUIBB COMPANY-14474050

PATIENT
  Age: 42 Year
  Sex: Male
  Weight: 91 kg

DRUGS (3)
  1. ABILIFY [Suspect]
     Indication: DEPRESSION
  2. PROZAC [Concomitant]
  3. ADVAIR DISKUS 100/50 [Concomitant]

REACTIONS (3)
  - DIZZINESS [None]
  - HEADACHE [None]
  - INSOMNIA [None]
